FAERS Safety Report 18728202 (Version 2)
Quarter: 2021Q1

REPORT INFORMATION
  Report Type: Spontaneous
  Country: US (occurrence: US)
  Receive Date: 20210111
  Receipt Date: 20210303
  Transmission Date: 20210419
  Serious: Yes (Hospitalization, Other)
  Sender: FDA-Public Use
  Company Number: US-CELLTRION INC.-2020US033339

PATIENT

DRUGS (41)
  1. ACETAMINOPHEN. [Concomitant]
     Active Substance: ACETAMINOPHEN
     Indication: PREMEDICATION
     Dosage: 650 MG
     Route: 048
     Dates: start: 20201221
  2. ADVIL [Concomitant]
     Active Substance: IBUPROFEN
     Indication: PAIN
     Dosage: 800 MG, EVERY 6 HOURS AS NEEDED
     Route: 048
  3. ATIVAN [Concomitant]
     Active Substance: LORAZEPAM
     Dosage: 0.5 MG, EVERY 6 HOURS AS NEEDED
     Route: 048
  4. NORVASC [Concomitant]
     Active Substance: AMLODIPINE BESYLATE
     Dosage: 10 MG, DAILY
     Route: 048
  5. TOPROL XL [Concomitant]
     Active Substance: METOPROLOL SUCCINATE
     Dosage: 25 MG DAILY
     Route: 048
  6. INFLECTRA [Suspect]
     Active Substance: INFLIXIMAB-DYYB
     Indication: ANKYLOSING SPONDYLITIS
     Dosage: 400 MG, IVPB
     Route: 042
     Dates: start: 20201130
  7. INFLECTRA [Suspect]
     Active Substance: INFLIXIMAB-DYYB
     Dosage: 500 MG, Q4WEEKS IVPB
     Route: 042
     Dates: start: 20201221, end: 20201221
  8. REMICADE [Suspect]
     Active Substance: INFLIXIMAB
     Dosage: UNK
     Dates: start: 20201221, end: 20201221
  9. ARAVA [Concomitant]
     Active Substance: LEFLUNOMIDE
     Dosage: 20 MG, DAILY
     Route: 048
     Dates: start: 20201109
  10. BAQSIMI [Concomitant]
     Active Substance: GLUCAGON
     Indication: HYPOGLYCAEMIA
     Dosage: 3 MG, SPRAY IN ONE NOSTRIL
     Route: 045
     Dates: start: 20200507
  11. NITROSTAT [Concomitant]
     Active Substance: NITROGLYCERIN
     Indication: CHEST PAIN
     Dosage: 0.4 MG UNDER THE TONGUE EVERY 5 MINUTES AS NEEDED
     Route: 060
  12. PROSCAR [Concomitant]
     Active Substance: FINASTERIDE
     Dosage: 5 MG, DAILY
     Route: 048
  13. INFLECTRA [Suspect]
     Active Substance: INFLIXIMAB-DYYB
     Dosage: 500 MG, EVERY 6 WEEKS
  14. DESYREL [Concomitant]
     Active Substance: TRAZODONE HYDROCHLORIDE
     Dosage: 100 MG, NIGHTLY AS NEEDED
     Route: 048
     Dates: start: 20200630
  15. HUMIRA [Concomitant]
     Active Substance: ADALIMUMAB
     Dosage: 40 MG, Q2WEEKS
     Route: 058
  16. LORTAB [Concomitant]
     Active Substance: ACETAMINOPHEN\HYDROCODONE BITARTRATE
     Dosage: 5?325 MG
     Route: 048
  17. NEURONTIN [Concomitant]
     Active Substance: GABAPENTIN
     Dosage: 300 MG, 3 CAPSULES NIGHTLY
     Route: 048
     Dates: start: 20201009
  18. VITAMIN D [COLECALCIFEROL] [Concomitant]
     Active Substance: CHOLECALCIFEROL
     Dosage: 50 MCG DAILY
     Route: 048
     Dates: start: 20201002
  19. ZOCOR [Concomitant]
     Active Substance: SIMVASTATIN
     Dosage: 80 MG, NIGHTLY
     Route: 048
  20. REMICADE [Suspect]
     Active Substance: INFLIXIMAB
     Indication: ANKYLOSING SPONDYLITIS
     Dosage: 5MG/KG AT WEEKS 0, 2, AND 6
     Dates: start: 20201130
  21. MOBIC [Concomitant]
     Active Substance: MELOXICAM
     Dosage: 15 MG, DAILY
     Route: 048
  22. IMDUR [Concomitant]
     Active Substance: ISOSORBIDE MONONITRATE
     Dosage: UNK
     Dates: start: 20201222
  23. MOTRIN [Concomitant]
     Active Substance: IBUPROFEN
     Indication: PAIN
     Dosage: 800 MG, EVERY 6 HOURS AS NEEDED
     Route: 048
  24. NOVOLOG [Concomitant]
     Active Substance: INSULIN ASPART
     Dosage: 100 UNIT/ML, INJECT 3 TIMES DAILY PER INSULIN ORDERS
     Route: 058
     Dates: start: 20200609
  25. INFLECTRA [Suspect]
     Active Substance: INFLIXIMAB-DYYB
     Dosage: REGIMEN #2, 500 MG, AT WEEK 0,2, THEN EVERY 4 WEEKS
     Route: 042
     Dates: start: 202012
  26. INFLECTRA [Suspect]
     Active Substance: INFLIXIMAB-DYYB
     Dosage: REGIMEN #3, 500 MG [Q (EVERY) 4 WEEKS]
     Route: 042
     Dates: start: 20201130, end: 20201221
  27. ANORO ELLIPTA [Concomitant]
     Active Substance: UMECLIDINIUM BROMIDE\VILANTEROL TRIFENATATE
     Dosage: 62.5?25 MCG/INH AT 1 PUFF INTO THE LUNGS DAILY
  28. ASPIRIN. [Concomitant]
     Active Substance: ASPIRIN
     Dosage: 81 MG, DAILY
     Route: 048
  29. FLOMAX [Concomitant]
     Active Substance: TAMSULOSIN HYDROCHLORIDE
     Dosage: 0.4 MG, DAILY
     Route: 048
     Dates: start: 20190807
  30. TRESIBA [Concomitant]
     Active Substance: INSULIN DEGLUDEC
     Dosage: 200 UNIT/ML AT 20 U IN MORNING (PATIENT TAKING DIFFERENTLY: TAKE 26 U IN MORNING. MDD 35U)
     Route: 058
     Dates: start: 20200418
  31. VENTOLIN HFA [Concomitant]
     Active Substance: ALBUTEROL SULFATE
     Dosage: 108 (90 BASE) MCG/ACT INHALER AT 2 PUFFS INTO THE LUNGS EVERY 4 HOURS AS NEEDED
     Dates: start: 20190329
  32. ZESTORETIC [Concomitant]
     Active Substance: HYDROCHLOROTHIAZIDE\LISINOPRIL
     Dosage: 10?12.5 MG DAILY
     Route: 048
  33. PROTONIX [Concomitant]
     Active Substance: PANTOPRAZOLE SODIUM
     Route: 065
  34. MELATONIN [Concomitant]
     Active Substance: MELATONIN
  35. INFLECTRA [Suspect]
     Active Substance: INFLIXIMAB-DYYB
     Dosage: 500 MG WEEK 0, 2, THEN EVERY 4 WEEKS
     Route: 065
  36. REMICADE [Suspect]
     Active Substance: INFLIXIMAB
     Dosage: UNK, EVERY 6 WEEKS
  37. CYMBALTA [Concomitant]
     Active Substance: DULOXETINE HYDROCHLORIDE
     Dosage: 60 MG, DAILY
     Route: 048
  38. DECADRON (DEXAMETHASONE SODIUM PHOSPHATE) [Concomitant]
     Active Substance: DEXAMETHASONE SODIUM PHOSPHATE
     Indication: PREMEDICATION
     Dosage: 4 MG
     Route: 042
     Dates: start: 20201221
  39. DESYREL [Concomitant]
     Active Substance: TRAZODONE HYDROCHLORIDE
     Dosage: UNK
     Dates: start: 20200530
  40. PRINZIDE [Concomitant]
     Active Substance: HYDROCHLOROTHIAZIDE\LISINOPRIL
     Dosage: 10?12.5 MG DAILY
     Route: 048
  41. TRAZODONE [Concomitant]
     Active Substance: TRAZODONE HYDROCHLORIDE

REACTIONS (27)
  - Heart rate irregular [Unknown]
  - Tenderness [Unknown]
  - Pulse abnormal [Unknown]
  - Hypotension [Unknown]
  - Fatigue [Unknown]
  - Underdose [Unknown]
  - Skin discolouration [Unknown]
  - Angina pectoris [Unknown]
  - Dyspnoea [Recovered/Resolved]
  - Back pain [Unknown]
  - Infection [Unknown]
  - Throat irritation [Unknown]
  - Bradycardia [Unknown]
  - Initial insomnia [Not Recovered/Not Resolved]
  - Joint range of motion decreased [Unknown]
  - Chest discomfort [Recovered/Resolved]
  - Nausea [Recovered/Resolved]
  - Malaise [Unknown]
  - Peripheral swelling [Unknown]
  - Wheezing [Unknown]
  - Heart rate abnormal [Unknown]
  - Product dose omission issue [Unknown]
  - Chest pain [Recovering/Resolving]
  - Dyskinesia [Unknown]
  - Condition aggravated [Unknown]
  - Hyperhidrosis [Unknown]
  - Off label use [Unknown]

NARRATIVE: CASE EVENT DATE: 20201221
